FAERS Safety Report 12787619 (Version 3)
Quarter: 2017Q2

REPORT INFORMATION
  Report Type: Spontaneous
  Country: US (occurrence: US)
  Receive Date: 20160928
  Receipt Date: 20170503
  Transmission Date: 20170830
  Serious: Yes (Hospitalization)
  Sender: FDA-Public Use
  Company Number: US-ROCHE-1726697

PATIENT
  Sex: Female

DRUGS (6)
  1. BABY ASA [Concomitant]
     Active Substance: ASPIRIN
  2. CEFADROXIL. [Concomitant]
     Active Substance: CEFADROXIL
  3. ESBRIET [Suspect]
     Active Substance: PIRFENIDONE
     Route: 048
  4. PREDNISONE. [Concomitant]
     Active Substance: PREDNISONE
  5. PEPCID AC [Concomitant]
     Active Substance: FAMOTIDINE
  6. ESBRIET [Suspect]
     Active Substance: PIRFENIDONE
     Indication: IDIOPATHIC PULMONARY FIBROSIS
     Route: 048
     Dates: start: 20160212, end: 20160309

REACTIONS (10)
  - Anaemia [Unknown]
  - Infected bite [Unknown]
  - Malaise [Unknown]
  - Abdominal discomfort [Unknown]
  - Asthenia [Unknown]
  - Nausea [Unknown]
  - Pruritus [Unknown]
  - Fatigue [Unknown]
  - Fibrosis [Unknown]
  - Abdominal pain upper [Unknown]
